FAERS Safety Report 11743768 (Version 1)
Quarter: 2015Q4

REPORT INFORMATION
  Report Type: Spontaneous
  Country: US (occurrence: US)
  Receive Date: 20151116
  Receipt Date: 20151116
  Transmission Date: 20160304
  Serious: Yes (Other)
  Sender: FDA-Public Use
  Company Number: US-ELI_LILLY_AND_COMPANY-US201511001939

PATIENT
  Sex: Female
  Weight: 49.89 kg

DRUGS (3)
  1. ADCIRCA [Suspect]
     Active Substance: TADALAFIL
     Indication: PRODUCT USED FOR UNKNOWN INDICATION
     Dosage: UNK, UNKNOWN
     Route: 065
  2. TYVASO [Suspect]
     Active Substance: TREPROSTINIL
     Indication: PULMONARY ARTERIAL HYPERTENSION
     Dosage: 3 DF, QID
     Route: 055
     Dates: start: 20151016
  3. TYVASO [Suspect]
     Active Substance: TREPROSTINIL
     Dosage: 9 DF, QID
     Route: 055
     Dates: start: 20151016

REACTIONS (2)
  - Visual impairment [Recovered/Resolved]
  - Diarrhoea [Recovered/Resolved]
